FAERS Safety Report 14249891 (Version 5)
Quarter: 2018Q1

REPORT INFORMATION
  Report Type: Spontaneous
  Country: JP (occurrence: JP)
  Receive Date: 20171205
  Receipt Date: 20180323
  Transmission Date: 20180508
  Serious: Yes (Death, Hospitalization, Other)
  Sender: FDA-Public Use
  Company Number: JP-BRISTOL-MYERS SQUIBB COMPANY-BMS-2017-109807

PATIENT
  Age: 79 Year
  Sex: Male

DRUGS (1)
  1. OPDIVO [Suspect]
     Active Substance: NIVOLUMAB
     Indication: NON-SMALL CELL LUNG CANCER
     Dosage: 200 MG, UNK
     Route: 041
     Dates: start: 20160427, end: 20160520

REACTIONS (6)
  - Shock [Fatal]
  - Malignant neoplasm progression [Unknown]
  - Injury [Unknown]
  - Prescribed underdose [Unknown]
  - Blood pressure decreased [Unknown]
  - Completed suicide [Fatal]

NARRATIVE: CASE EVENT DATE: 2016
